FAERS Safety Report 14267089 (Version 1)
Quarter: 2017Q4

REPORT INFORMATION
  Report Type: Spontaneous
  Country: US (occurrence: US)
  Receive Date: 20171211
  Receipt Date: 20171211
  Transmission Date: 20180321
  Serious: No
  Sender: FDA-Public Use
  Company Number: US-PFIZER INC-2017522932

PATIENT
  Age: 72 Year
  Sex: Female
  Weight: 77.98 kg

DRUGS (35)
  1. CEFTRIAXONE SODIUM. [Suspect]
     Active Substance: CEFTRIAXONE SODIUM
     Dosage: UNK
  2. CELEBREX [Suspect]
     Active Substance: CELECOXIB
     Dosage: UNK
  3. NORVASC [Suspect]
     Active Substance: AMLODIPINE BESYLATE
     Dosage: UNK
  4. CARTIA XT [Suspect]
     Active Substance: DILTIAZEM HYDROCHLORIDE
     Dosage: UNK
  5. CLONIDINE. [Suspect]
     Active Substance: CLONIDINE
     Dosage: UNK
  6. DIOVAN [Suspect]
     Active Substance: VALSARTAN
     Dosage: UNK
  7. LASIX [Suspect]
     Active Substance: FUROSEMIDE
     Dosage: UNK
  8. ZETIA [Suspect]
     Active Substance: EZETIMIBE
     Dosage: UNK
  9. CODEINE [Suspect]
     Active Substance: CODEINE
     Dosage: UNK
  10. LIPITOR [Suspect]
     Active Substance: ATORVASTATIN CALCIUM
     Dosage: UNK
  11. ATENOLOL. [Suspect]
     Active Substance: ATENOLOL
     Dosage: UNK
  12. BENICAR [Suspect]
     Active Substance: OLMESARTAN MEDOXOMIL
     Dosage: UNK
  13. CITALOPRAM [Suspect]
     Active Substance: CITALOPRAM HYDROBROMIDE
     Dosage: UNK
  14. COZAAR [Suspect]
     Active Substance: LOSARTAN POTASSIUM
     Dosage: UNK
  15. ENABLEX [Suspect]
     Active Substance: DARIFENACIN HYDROBROMIDE
     Dosage: UNK
  16. HYDRALAZINE [Suspect]
     Active Substance: HYDRALAZINE HYDROCHLORIDE
     Dosage: UNK
  17. AMOXICILLIN. [Suspect]
     Active Substance: AMOXICILLIN
     Dosage: UNK
  18. CARDIZEM [Suspect]
     Active Substance: DILTIAZEM HYDROCHLORIDE
     Dosage: UNK
  19. NIASPAN [Suspect]
     Active Substance: NIACIN
     Dosage: UNK
  20. SINGULAIR [Suspect]
     Active Substance: MONTELUKAST SODIUM
     Dosage: UNK
  21. ULTRAM [Suspect]
     Active Substance: TRAMADOL HYDROCHLORIDE
  22. TEKTURNA [Suspect]
     Active Substance: ALISKIREN HEMIFUMARATE
     Dosage: UNK
  23. SODIUM SULAMYD [Suspect]
     Active Substance: SULFACETAMIDE SODIUM
     Dosage: UNK
  24. VANCOMYCIN HCL [Suspect]
     Active Substance: VANCOMYCIN HYDROCHLORIDE
     Dosage: UNK
  25. DECONGESTANT [Suspect]
     Active Substance: UNSPECIFIED INGREDIENT
     Dosage: UNK
  26. CUBICIN [Suspect]
     Active Substance: DAPTOMYCIN
     Dosage: UNK
  27. ENALAPRIL [Suspect]
     Active Substance: ENALAPRIL
     Dosage: UNK
  28. SALSALATE. [Suspect]
     Active Substance: SALSALATE
     Dosage: UNK
  29. TERBINAFINE. [Suspect]
     Active Substance: TERBINAFINE
     Dosage: UNK
  30. AMLODIPINE BESILATE [Suspect]
     Active Substance: AMLODIPINE BESYLATE
     Dosage: UNK
  31. BENAZEPRIL [Suspect]
     Active Substance: BENAZEPRIL HYDROCHLORIDE
     Dosage: UNK
  32. BLEPH-10 [Suspect]
     Active Substance: SULFACETAMIDE SODIUM
     Dosage: UNK
  33. CHLORAL HYDRATE [Suspect]
     Active Substance: CHLORAL HYDRATE
     Dosage: UNK
  34. ZOCOR [Suspect]
     Active Substance: SIMVASTATIN
     Dosage: UNK
  35. LISINOPRIL. [Suspect]
     Active Substance: LISINOPRIL
     Dosage: UNK

REACTIONS (1)
  - Drug hypersensitivity [Unknown]
